FAERS Safety Report 22536857 (Version 2)
Quarter: 2023Q2

REPORT INFORMATION
  Report Type: Spontaneous
  Country: US (occurrence: US)
  Receive Date: 20230608
  Receipt Date: 20230619
  Transmission Date: 20230721
  Serious: No
  Sender: FDA-Public Use
  Company Number: US-AMGEN-USASL2023095529

PATIENT
  Age: 73 Year
  Sex: Female

DRUGS (12)
  1. PROCRIT [Suspect]
     Active Substance: ERYTHROPOIETIN
     Indication: Anaemia
     Dosage: UNK, Q4WK
     Route: 065
     Dates: start: 20200904
  2. PROCRIT [Suspect]
     Active Substance: ERYTHROPOIETIN
     Indication: Off label use
     Dosage: UNK, Q2WK
     Route: 065
  3. PROCRIT [Suspect]
     Active Substance: ERYTHROPOIETIN
     Dosage: UNK, QWK
     Route: 065
  4. POMALYST [Concomitant]
     Active Substance: POMALIDOMIDE
     Dosage: 4 MILLIGRAM
     Dates: start: 20190116
  5. XGEVA [Concomitant]
     Active Substance: DENOSUMAB
     Dosage: 120 MILLIGRAM
     Dates: start: 20210120
  6. EMPLICITI [Concomitant]
     Active Substance: ELOTUZUMAB
     Dosage: 10 MILLIMOLE PER KILOGRAM
     Dates: start: 20220323, end: 20230106
  7. DECADRON [Concomitant]
     Active Substance: DEXAMETHASONE
     Dosage: UNK
     Dates: start: 20220323
  8. EVUSHELD [Concomitant]
     Active Substance: CILGAVIMAB\TIXAGEVIMAB
     Dosage: UNK
     Dates: start: 20220615, end: 20220629
  9. BORTEZOMIB [Concomitant]
     Active Substance: BORTEZOMIB
     Dosage: 1.5 MILLIGRAM/SQ. METER
     Dates: start: 20230110
  10. CYTOXAN [Concomitant]
     Active Substance: CYCLOPHOSPHAMIDE
     Dosage: UNK
     Dates: start: 20230110
  11. CARVYKTI [Concomitant]
     Active Substance: CILTACABTAGENE AUTOLEUCEL
     Indication: Plasma cell myeloma
     Dosage: UNK
     Dates: start: 20230221, end: 20230221
  12. TOCILIZUMAB [Concomitant]
     Active Substance: TOCILIZUMAB
     Indication: Plasma cell myeloma
     Dosage: UNK
     Dates: start: 202302

REACTIONS (1)
  - Off label use [Unknown]

NARRATIVE: CASE EVENT DATE: 20200904
